FAERS Safety Report 5563160-5 (Version None)
Quarter: 2007Q4

REPORT INFORMATION
  Report Type: 
  Country: None (occurrence: None)
  Receive Date: 20071217
  Receipt Date: 20071207
  Transmission Date: 20080405
  Serious: Yes (Other)
  Sender: FDA-Public Use
  Company Number: B0499847A

PATIENT
  Age: 9 Year
  Sex: Female

DRUGS (1)
  1. FLUTICASONE PROPIONATE [Suspect]
     Route: 045
     Dates: start: 20070820, end: 20070907

REACTIONS (3)
  - DIZZINESS [None]
  - HEADACHE [None]
  - SYNCOPE [None]
